FAERS Safety Report 23426573 (Version 4)
Quarter: 2024Q3

REPORT INFORMATION
  Report Type: Spontaneous
  Country: CA (occurrence: CA)
  Receive Date: 20240122
  Receipt Date: 20240913
  Transmission Date: 20241017
  Serious: Yes (Death, Life-Threatening, Hospitalization, Other)
  Sender: JOHNSON AND JOHNSON
  Company Number: CA-JNJFOC-20240139582

PATIENT
  Age: 15 Year
  Sex: Female

DRUGS (1)
  1. ACETAMINOPHEN [Suspect]
     Active Substance: ACETAMINOPHEN
     Indication: Product used for unknown indication
     Route: 048

REACTIONS (23)
  - Acute hepatic failure [Fatal]
  - Blood creatinine increased [Fatal]
  - Brain death [Fatal]
  - Brain herniation [Fatal]
  - Brain oedema [Fatal]
  - Drug withdrawal syndrome [Fatal]
  - Hepatic encephalopathy [Fatal]
  - Hepatotoxicity [Fatal]
  - Hypothermia [Fatal]
  - Intentional overdose [Fatal]
  - Oliguria [Fatal]
  - Posterior reversible encephalopathy syndrome [Fatal]
  - Toxicity to various agents [Fatal]
  - Uraemic encephalopathy [Fatal]
  - International normalised ratio increased [Recovering/Resolving]
  - Abdominal discomfort [Unknown]
  - Agitation [Unknown]
  - Dose calculation error [Unknown]
  - Headache [Unknown]
  - Liver injury [Unknown]
  - Nausea [Unknown]
  - Overdose [Unknown]
  - Seizure [Unknown]
